FAERS Safety Report 6829713-9 (Version None)
Quarter: 2010Q3

REPORT INFORMATION
  Report Type: 
  Country: None (occurrence: None)
  Receive Date: 20100709
  Receipt Date: 20070721
  Transmission Date: 20110219
  Serious: No
  Sender: FDA-Public Use
  Company Number: US-PFIZER INC-2007019955

PATIENT
  Sex: Female

DRUGS (3)
  1. CHANTIX [Suspect]
     Indication: SMOKING CESSATION THERAPY
     Route: 048
     Dates: start: 20070301
  2. LEXAPRO [Concomitant]
  3. CLONAZEPAM [Concomitant]

REACTIONS (3)
  - FLUID RETENTION [None]
  - FOOD CRAVING [None]
  - WEIGHT INCREASED [None]
